FAERS Safety Report 9782298 (Version 2)
Quarter: 2014Q3

REPORT INFORMATION
  Report Type: Spontaneous
  Country: IT (occurrence: IT)
  Receive Date: 20131226
  Receipt Date: 20140716
  Transmission Date: 20150326
  Serious: Yes (Hospitalization, Other)
  Sender: FDA-Public Use
  Company Number: PHHY2013IT148897

PATIENT
  Age: 57 Year
  Sex: Male

DRUGS (21)
  1. AMIODARONE [Interacting]
     Active Substance: AMIODARONE
     Dosage: 200 MG, UNK
  2. STEROIDS [Concomitant]
     Active Substance: UNSPECIFIED INGREDIENT
     Dosage: 12.5 MG, UNK
     Route: 048
  3. OMEPRAZOLE. [Concomitant]
     Active Substance: OMEPRAZOLE
  4. OMEGA-3 FATTY ACIDS [Concomitant]
     Active Substance: OMEGA-3 FATTY ACIDS
  5. STEROIDS [Concomitant]
     Active Substance: UNSPECIFIED INGREDIENT
     Dosage: 5 MG, UNK
     Route: 048
  6. WARFARIN [Concomitant]
     Active Substance: WARFARIN
     Indication: ATRIAL FIBRILLATION
  7. PREDNISONE. [Concomitant]
     Active Substance: PREDNISONE
     Dosage: 5 MG, UNK
  8. IRBESARTAN. [Concomitant]
     Active Substance: IRBESARTAN
  9. AMIODARONE [Interacting]
     Active Substance: AMIODARONE
     Dosage: 600 MG, UNK
     Dates: start: 201110
  10. STEROIDS [Concomitant]
     Active Substance: UNSPECIFIED INGREDIENT
     Dosage: 5 MG, UNK
     Route: 048
  11. PROGRAF [Concomitant]
     Active Substance: TACROLIMUS\TACROLIMUS ANHYDROUS
     Dosage: 3 MG, UNK
  12. DOXAZOSIN [Concomitant]
     Active Substance: DOXAZOSIN\DOXAZOSIN MESYLATE
  13. STEROIDS [Concomitant]
     Active Substance: UNSPECIFIED INGREDIENT
     Dosage: 7.5 MG, UNK
     Route: 048
  14. METOPROLOL [Concomitant]
     Active Substance: METOPROLOL
  15. FUROSEMIDE. [Concomitant]
     Active Substance: FUROSEMIDE
  16. CERTICAN [Suspect]
     Active Substance: EVEROLIMUS
     Indication: CHRONIC ALLOGRAFT NEPHROPATHY
     Dosage: 1.75 MG, UNK
     Dates: start: 2008
  17. CERTICAN [Interacting]
     Active Substance: EVEROLIMUS
     Indication: ARTERIOSCLEROSIS
  18. AMLODIPINE [Concomitant]
     Active Substance: AMLODIPINE BESYLATE
  19. ALLOPURINOL. [Concomitant]
     Active Substance: ALLOPURINOL
  20. MAGNESIUM PIDOLATE [Concomitant]
     Active Substance: MAGNESIUM PIDOLATE
  21. FERROUS LIPOSOMES [Concomitant]

REACTIONS (10)
  - Interstitial lung disease [Recovered/Resolved]
  - Carbon monoxide diffusing capacity decreased [Recovered/Resolved]
  - Malaise [Recovered/Resolved]
  - Drug interaction [Unknown]
  - Renal impairment [Not Recovered/Not Resolved]
  - Pulmonary toxicity [Recovered/Resolved]
  - Pyrexia [Recovered/Resolved]
  - Breath sounds abnormal [Recovered/Resolved]
  - Dyspnoea [Unknown]
  - Blood creatinine increased [Recovered/Resolved]
